FAERS Safety Report 4507622-8 (Version None)
Quarter: 2004Q4

REPORT INFORMATION
  Report Type: 
  Country: None (occurrence: None)
  Receive Date: 20041123
  Receipt Date: 20041116
  Transmission Date: 20050328
  Serious: Yes (Other)
  Sender: FDA-Public Use
  Company Number: FR-BRISTOL-MYERS SQUIBB COMPANY-12766812

PATIENT
  Sex: Female

DRUGS (1)
  1. PARAPLATIN [Suspect]
     Route: 042

REACTIONS (1)
  - SHOCK [None]
